FAERS Safety Report 15728040 (Version 19)
Quarter: 2022Q3

REPORT INFORMATION
  Report Type: Report from Study
  Country: CN (occurrence: None)
  Receive Date: 20181217
  Receipt Date: 20220708
  Transmission Date: 20221027
  Serious: Yes (Life-Threatening, Hospitalization)
  Sender: FDA-Public Use
  Company Number: CN-ROCHE-2213806

PATIENT
  Age: 54 Year
  Sex: Female
  Weight: 52.5 kg

DRUGS (119)
  1. PLACEBO [Suspect]
     Active Substance: UNSPECIFIED INGREDIENT
     Indication: Ovarian cancer
     Dosage: DATE OF MOST RECENT DOSE OF PLACEBO PRIOR TO AE AND SAE MYELOSUPPRESSION ONSET: 05/NOV/2018
     Route: 042
     Dates: start: 20180921
  2. PACLITAXEL [Suspect]
     Active Substance: PACLITAXEL
     Indication: Ovarian cancer
     Dosage: DATE OF MOST RECENT DOSE OF PACLITAXEL (250 MG)  PRIOR TO AE AND SAE MYELOSUPPRESSION ONSET 05/NOV/2
     Route: 042
     Dates: start: 20180921
  3. CARBOPLATIN [Suspect]
     Active Substance: CARBOPLATIN
     Indication: Ovarian cancer
     Dosage: DATE OF MOST RECENT DOSE (560MG) OF CARBOPLATIN PRIOR TO AE AND SAE MYELOSUPPRESSION ONSET 05/NOV/20
     Route: 042
     Dates: start: 20180921
  4. BEVACIZUMAB [Suspect]
     Active Substance: BEVACIZUMAB
     Indication: Ovarian cancer
     Dosage: DATE OF MOST RECENT DOSE OF BEVACIZUMAB PRIOR TO AE AND SAE MYELOSUPPRESSION ONSET: 05/NOV/2018?DATE
     Route: 042
     Dates: start: 20181015
  5. FELODIPINE [Concomitant]
     Active Substance: FELODIPINE
     Indication: Hypertension
     Dates: start: 20191207, end: 20191208
  6. DEXAMETHASONE ACETATE [Concomitant]
     Active Substance: DEXAMETHASONE ACETATE
     Indication: Allergy prophylaxis
     Route: 048
     Dates: start: 20181014, end: 20181014
  7. DEXAMETHASONE ACETATE [Concomitant]
     Active Substance: DEXAMETHASONE ACETATE
     Route: 048
     Dates: start: 20181104, end: 20181104
  8. DEXAMETHASONE ACETATE [Concomitant]
     Active Substance: DEXAMETHASONE ACETATE
     Route: 048
     Dates: start: 20181225, end: 20181225
  9. DEXAMETHASONE ACETATE [Concomitant]
     Active Substance: DEXAMETHASONE ACETATE
     Route: 048
     Dates: start: 20181127, end: 20181127
  10. DEXAMETHASONE ACETATE [Concomitant]
     Active Substance: DEXAMETHASONE ACETATE
     Route: 042
     Dates: start: 20191208, end: 20191208
  11. LORATADINE [Concomitant]
     Active Substance: LORATADINE
     Indication: Allergy prophylaxis
     Dates: start: 20181015, end: 20181015
  12. LORATADINE [Concomitant]
     Active Substance: LORATADINE
     Dates: start: 20181105, end: 20181105
  13. LORATADINE [Concomitant]
     Active Substance: LORATADINE
     Dates: start: 20181226, end: 20181226
  14. LORATADINE [Concomitant]
     Active Substance: LORATADINE
     Dates: start: 20181128, end: 20181128
  15. LORATADINE [Concomitant]
     Active Substance: LORATADINE
     Dates: start: 20190609, end: 20190609
  16. LORATADINE [Concomitant]
     Active Substance: LORATADINE
     Dates: start: 20190701, end: 20190701
  17. LORATADINE [Concomitant]
     Active Substance: LORATADINE
     Dates: start: 20190722, end: 20190722
  18. LORATADINE [Concomitant]
     Active Substance: LORATADINE
     Dates: start: 20190812, end: 20190812
  19. LORATADINE [Concomitant]
     Active Substance: LORATADINE
     Dates: start: 20190901, end: 20190901
  20. LORATADINE [Concomitant]
     Active Substance: LORATADINE
     Dates: start: 20191022, end: 20191022
  21. LORATADINE [Concomitant]
     Active Substance: LORATADINE
     Dates: start: 20191114, end: 20191114
  22. LORATADINE [Concomitant]
     Active Substance: LORATADINE
     Dates: start: 20191205, end: 20191205
  23. LORATADINE [Concomitant]
     Active Substance: LORATADINE
     Dates: start: 20191211, end: 20191211
  24. LORATADINE [Concomitant]
     Active Substance: LORATADINE
     Dates: start: 20191225, end: 20191225
  25. LORATADINE [Concomitant]
     Active Substance: LORATADINE
     Dates: start: 20191226, end: 20191226
  26. CIMETIDINE [Concomitant]
     Active Substance: CIMETIDINE
     Indication: Allergy prophylaxis
     Dates: start: 20181015, end: 20181015
  27. CIMETIDINE [Concomitant]
     Active Substance: CIMETIDINE
     Dates: start: 20181105, end: 20181105
  28. CIMETIDINE [Concomitant]
     Active Substance: CIMETIDINE
     Dates: start: 20181226, end: 20181226
  29. CIMETIDINE [Concomitant]
     Active Substance: CIMETIDINE
     Dates: start: 20181128, end: 20181128
  30. CIMETIDINE [Concomitant]
     Active Substance: CIMETIDINE
     Dates: start: 20190609, end: 20190609
  31. CIMETIDINE [Concomitant]
     Active Substance: CIMETIDINE
     Dates: start: 20190701, end: 20190701
  32. CIMETIDINE [Concomitant]
     Active Substance: CIMETIDINE
     Dates: start: 20190722, end: 20190722
  33. CIMETIDINE [Concomitant]
     Active Substance: CIMETIDINE
     Dates: start: 20190812, end: 20190812
  34. CIMETIDINE [Concomitant]
     Active Substance: CIMETIDINE
     Dates: start: 20190901, end: 20190901
  35. CIMETIDINE [Concomitant]
     Active Substance: CIMETIDINE
     Dates: start: 20191022, end: 20191022
  36. CIMETIDINE [Concomitant]
     Active Substance: CIMETIDINE
     Dates: start: 20191114, end: 20191114
  37. CIMETIDINE [Concomitant]
     Active Substance: CIMETIDINE
     Dates: start: 20191205, end: 20191205
  38. CIMETIDINE [Concomitant]
     Active Substance: CIMETIDINE
     Dates: start: 20191225, end: 20191225
  39. CIMETIDINE [Concomitant]
     Active Substance: CIMETIDINE
     Dates: start: 20191226, end: 20191226
  40. DEXAMETHASONE SODIUM PHOSPHATE [Concomitant]
     Active Substance: DEXAMETHASONE SODIUM PHOSPHATE
     Indication: Allergy prophylaxis
     Route: 042
     Dates: start: 20181015, end: 20181015
  41. DEXAMETHASONE SODIUM PHOSPHATE [Concomitant]
     Active Substance: DEXAMETHASONE SODIUM PHOSPHATE
     Route: 042
     Dates: start: 20181105, end: 20181105
  42. DEXAMETHASONE SODIUM PHOSPHATE [Concomitant]
     Active Substance: DEXAMETHASONE SODIUM PHOSPHATE
     Route: 030
     Dates: start: 20181112, end: 20181112
  43. DEXAMETHASONE SODIUM PHOSPHATE [Concomitant]
     Active Substance: DEXAMETHASONE SODIUM PHOSPHATE
     Route: 042
     Dates: start: 20181113, end: 20181113
  44. DEXAMETHASONE SODIUM PHOSPHATE [Concomitant]
     Active Substance: DEXAMETHASONE SODIUM PHOSPHATE
     Route: 042
     Dates: start: 20181114, end: 20181114
  45. DEXAMETHASONE SODIUM PHOSPHATE [Concomitant]
     Active Substance: DEXAMETHASONE SODIUM PHOSPHATE
     Route: 042
     Dates: start: 20181116, end: 20181116
  46. DEXAMETHASONE SODIUM PHOSPHATE [Concomitant]
     Active Substance: DEXAMETHASONE SODIUM PHOSPHATE
     Route: 042
     Dates: start: 20181226, end: 20181226
  47. DEXAMETHASONE SODIUM PHOSPHATE [Concomitant]
     Active Substance: DEXAMETHASONE SODIUM PHOSPHATE
     Route: 042
     Dates: start: 20181128, end: 20181128
  48. DEXAMETHASONE SODIUM PHOSPHATE [Concomitant]
     Active Substance: DEXAMETHASONE SODIUM PHOSPHATE
     Route: 042
     Dates: start: 20190609, end: 20190609
  49. DEXAMETHASONE SODIUM PHOSPHATE [Concomitant]
     Active Substance: DEXAMETHASONE SODIUM PHOSPHATE
     Route: 042
     Dates: start: 20190701, end: 20190701
  50. DEXAMETHASONE SODIUM PHOSPHATE [Concomitant]
     Active Substance: DEXAMETHASONE SODIUM PHOSPHATE
     Route: 042
     Dates: start: 20190722, end: 20190722
  51. DEXAMETHASONE SODIUM PHOSPHATE [Concomitant]
     Active Substance: DEXAMETHASONE SODIUM PHOSPHATE
     Route: 042
     Dates: start: 20190812, end: 20190812
  52. DEXAMETHASONE SODIUM PHOSPHATE [Concomitant]
     Active Substance: DEXAMETHASONE SODIUM PHOSPHATE
     Route: 042
     Dates: start: 20190901, end: 20190901
  53. DEXAMETHASONE SODIUM PHOSPHATE [Concomitant]
     Active Substance: DEXAMETHASONE SODIUM PHOSPHATE
     Dates: start: 20191022, end: 20191022
  54. DEXAMETHASONE SODIUM PHOSPHATE [Concomitant]
     Active Substance: DEXAMETHASONE SODIUM PHOSPHATE
     Route: 042
     Dates: start: 20191114, end: 20191114
  55. DEXAMETHASONE SODIUM PHOSPHATE [Concomitant]
     Active Substance: DEXAMETHASONE SODIUM PHOSPHATE
     Route: 042
     Dates: start: 20191205, end: 20191205
  56. DEXAMETHASONE SODIUM PHOSPHATE [Concomitant]
     Active Substance: DEXAMETHASONE SODIUM PHOSPHATE
     Route: 042
     Dates: start: 20191206, end: 20191206
  57. DEXAMETHASONE SODIUM PHOSPHATE [Concomitant]
     Active Substance: DEXAMETHASONE SODIUM PHOSPHATE
     Route: 042
     Dates: start: 20191207, end: 20191207
  58. DEXAMETHASONE SODIUM PHOSPHATE [Concomitant]
     Active Substance: DEXAMETHASONE SODIUM PHOSPHATE
     Route: 042
     Dates: start: 20191208, end: 20191208
  59. DEXAMETHASONE SODIUM PHOSPHATE [Concomitant]
     Active Substance: DEXAMETHASONE SODIUM PHOSPHATE
     Route: 042
     Dates: start: 20191210, end: 20191210
  60. DEXAMETHASONE SODIUM PHOSPHATE [Concomitant]
     Active Substance: DEXAMETHASONE SODIUM PHOSPHATE
     Route: 042
     Dates: start: 20191211, end: 20191211
  61. DEXAMETHASONE SODIUM PHOSPHATE [Concomitant]
     Active Substance: DEXAMETHASONE SODIUM PHOSPHATE
     Route: 042
     Dates: start: 20191211, end: 20191211
  62. DEXAMETHASONE SODIUM PHOSPHATE [Concomitant]
     Active Substance: DEXAMETHASONE SODIUM PHOSPHATE
     Route: 042
     Dates: start: 20191215, end: 20191215
  63. DEXAMETHASONE SODIUM PHOSPHATE [Concomitant]
     Active Substance: DEXAMETHASONE SODIUM PHOSPHATE
     Route: 042
     Dates: start: 20191216, end: 20191216
  64. DEXAMETHASONE SODIUM PHOSPHATE [Concomitant]
     Active Substance: DEXAMETHASONE SODIUM PHOSPHATE
     Route: 042
     Dates: start: 20191218, end: 20191218
  65. DEXAMETHASONE SODIUM PHOSPHATE [Concomitant]
     Active Substance: DEXAMETHASONE SODIUM PHOSPHATE
     Route: 042
     Dates: start: 20191219, end: 20191219
  66. DEXAMETHASONE SODIUM PHOSPHATE [Concomitant]
     Active Substance: DEXAMETHASONE SODIUM PHOSPHATE
     Route: 042
     Dates: start: 20191225, end: 20191225
  67. DEXAMETHASONE SODIUM PHOSPHATE [Concomitant]
     Active Substance: DEXAMETHASONE SODIUM PHOSPHATE
     Route: 042
     Dates: start: 20191226, end: 20191226
  68. PALONOSETRON [Concomitant]
     Active Substance: PALONOSETRON
     Indication: Prophylaxis of nausea and vomiting
     Dates: start: 20181015, end: 20181015
  69. PALONOSETRON [Concomitant]
     Active Substance: PALONOSETRON
     Dates: start: 20181105, end: 20181105
  70. PALONOSETRON [Concomitant]
     Active Substance: PALONOSETRON
     Dates: start: 20181226, end: 20181226
  71. PALONOSETRON [Concomitant]
     Active Substance: PALONOSETRON
     Dates: start: 20181128, end: 20181128
  72. PALONOSETRON [Concomitant]
     Active Substance: PALONOSETRON
     Dates: start: 20190812, end: 20190812
  73. OMEPRAZOLE SODIUM [Concomitant]
     Active Substance: OMEPRAZOLE SODIUM
     Indication: Gastrointestinal disorder prophylaxis
     Dates: start: 20181015, end: 20181018
  74. OMEPRAZOLE SODIUM [Concomitant]
     Active Substance: OMEPRAZOLE SODIUM
     Dates: start: 20181105, end: 20181113
  75. OMEPRAZOLE SODIUM [Concomitant]
     Active Substance: OMEPRAZOLE SODIUM
     Dates: start: 20181226, end: 20181229
  76. OMEPRAZOLE SODIUM [Concomitant]
     Active Substance: OMEPRAZOLE SODIUM
     Dates: start: 20181128, end: 20181203
  77. OMEPRAZOLE SODIUM [Concomitant]
     Active Substance: OMEPRAZOLE SODIUM
     Dates: start: 20190901, end: 20190901
  78. OMEPRAZOLE SODIUM [Concomitant]
     Active Substance: OMEPRAZOLE SODIUM
     Dates: start: 20191022, end: 20191024
  79. OMEPRAZOLE SODIUM [Concomitant]
     Active Substance: OMEPRAZOLE SODIUM
     Dates: start: 20191114, end: 20191114
  80. OMEPRAZOLE SODIUM [Concomitant]
     Active Substance: OMEPRAZOLE SODIUM
     Dates: start: 20191225, end: 20191225
  81. GLUTATHIONE REDUCED [Concomitant]
     Dates: start: 20181015, end: 20181018
  82. GLUTATHIONE REDUCED [Concomitant]
     Dates: start: 20181105, end: 20181121
  83. GLUTATHIONE REDUCED [Concomitant]
     Dates: start: 20181226, end: 20181229
  84. GLUTATHIONE REDUCED [Concomitant]
     Dates: start: 20181128, end: 20181203
  85. GLUTATHIONE REDUCED [Concomitant]
     Dates: start: 20190609, end: 20190610
  86. GLUTATHIONE REDUCED [Concomitant]
     Dates: start: 20190701, end: 20190701
  87. GLUTATHIONE REDUCED [Concomitant]
     Dates: start: 20190722, end: 20190722
  88. GLUTATHIONE REDUCED [Concomitant]
     Dates: start: 20190901, end: 20190901
  89. GLUTATHIONE REDUCED [Concomitant]
     Dates: start: 20191022, end: 20191024
  90. GLUTATHIONE REDUCED [Concomitant]
     Dates: start: 20191114, end: 20191114
  91. PHOSPHOLIPID [Concomitant]
     Active Substance: PHOSPHOLIPID
     Route: 065
     Dates: start: 20181015, end: 20181018
  92. PHOSPHOLIPID [Concomitant]
     Active Substance: PHOSPHOLIPID
     Dates: start: 20181128, end: 20181203
  93. PHOSPHOLIPID [Concomitant]
     Active Substance: PHOSPHOLIPID
     Dates: start: 20190722, end: 20190722
  94. PHOSPHOLIPID [Concomitant]
     Active Substance: PHOSPHOLIPID
     Dates: start: 20191022, end: 20191024
  95. FUROSEMIDE [Concomitant]
     Active Substance: FUROSEMIDE
     Indication: Polyuria
     Dates: start: 20181015, end: 20181016
  96. FUROSEMIDE [Concomitant]
     Active Substance: FUROSEMIDE
     Dates: start: 20181105, end: 20181105
  97. FUROSEMIDE [Concomitant]
     Active Substance: FUROSEMIDE
     Dates: start: 20181226, end: 20181226
  98. FUROSEMIDE [Concomitant]
     Active Substance: FUROSEMIDE
     Dates: start: 20181128, end: 20181128
  99. IRON SUCROSE [Concomitant]
     Active Substance: IRON SUCROSE
     Indication: Anaemia
     Dates: start: 20181014, end: 20181016
  100. IRON SUCROSE [Concomitant]
     Active Substance: IRON SUCROSE
     Dates: start: 20181117, end: 20181119
  101. LACTULOSE [Concomitant]
     Active Substance: LACTULOSE
     Indication: Constipation
     Dates: start: 20181105, end: 20181105
  102. LACTULOSE [Concomitant]
     Active Substance: LACTULOSE
     Dates: start: 20181114, end: 20181114
  103. LACTULOSE [Concomitant]
     Active Substance: LACTULOSE
     Dates: start: 20190630, end: 20190630
  104. LACTULOSE [Concomitant]
     Active Substance: LACTULOSE
     Dates: start: 20191020, end: 20191023
  105. CEFOPERAZONE\SULBACTAM [Concomitant]
     Active Substance: CEFOPERAZONE\SULBACTAM
     Indication: Upper respiratory tract infection
     Dates: start: 20181111, end: 20181115
  106. CEFOPERAZONE\SULBACTAM [Concomitant]
     Active Substance: CEFOPERAZONE\SULBACTAM
     Indication: Infection
     Dates: start: 20191205, end: 20191220
  107. CARBAZOCHROME SODIUM SULFONATE [Concomitant]
     Active Substance: CARBAZOCHROME SODIUM SULFONATE
     Indication: Epistaxis
     Dates: start: 20181112, end: 20181112
  108. SORBITOL [Concomitant]
     Active Substance: SORBITOL
     Indication: Constipation
     Dates: start: 20181114, end: 20181114
  109. BETAHISTINE [Concomitant]
     Active Substance: BETAHISTINE
     Indication: Dizziness
     Dates: start: 20181228, end: 20181228
  110. HYDROCHLOROTHIAZIDE\IRBESARTAN [Concomitant]
     Active Substance: HYDROCHLOROTHIAZIDE\IRBESARTAN
     Indication: Hypotension
     Dates: start: 20190221
  111. PIPERAZINE BISFERULATE [Concomitant]
     Active Substance: PIPERAZINE BISFERULATE
     Indication: Proteinuria
     Dates: start: 20191114, end: 20191114
  112. VALSARTAN [Concomitant]
     Active Substance: VALSARTAN
     Indication: Hypertension
     Dates: start: 20191114
  113. PROMETHAZINE HYDROCHLORIDE [Concomitant]
     Active Substance: PROMETHAZINE HYDROCHLORIDE
     Indication: Chills
     Dates: start: 20191205, end: 20191205
  114. ADRENALIN HYDROCHLORIDE [Concomitant]
     Indication: Haemostasis
     Dates: start: 20191206, end: 20191206
  115. ISOSORBIDE MONONITRATE [Concomitant]
     Active Substance: ISOSORBIDE MONONITRATE
     Indication: Hypertension
     Dates: start: 20191207, end: 20191207
  116. DUPHALAC [Concomitant]
     Active Substance: LACTULOSE
     Indication: Constipation
     Dates: start: 20191207, end: 20191207
  117. LIDOCAINE HYDROCHLORIDE [Concomitant]
     Active Substance: LIDOCAINE HYDROCHLORIDE
     Dates: start: 20191224, end: 20191224
  118. LIDOCAINE HYDROCHLORIDE [Concomitant]
     Active Substance: LIDOCAINE HYDROCHLORIDE
     Dates: start: 20191223, end: 20191223
  119. HEPARIN SODIUM [Concomitant]
     Active Substance: HEPARIN SODIUM
     Dates: start: 20191224, end: 20191224

REACTIONS (2)
  - Myelosuppression [Recovered/Resolved]
  - Platelet count decreased [Recovered/Resolved]

NARRATIVE: CASE EVENT DATE: 20181102
